FAERS Safety Report 8941817 (Version 1)
Quarter: 2012Q4

REPORT INFORMATION
  Report Type: 
  Country: US (occurrence: US)
  Receive Date: 20121203
  Receipt Date: 20121203
  Transmission Date: 20130627
  Serious: Yes (Death)
  Sender: FDA-Public Use
  Company Number: US-SHIRE-ALL1-2012-06008

PATIENT
  Age: 44 Year
  Sex: Male

DRUGS (2)
  1. FOSRENOL [Suspect]
     Indication: RENAL FAILURE CHRONIC
     Dosage: 1000 mg, 3x/day:tid (1000 mg tablet three times a day with each meal)
     Route: 048
  2. FOSRENOL [Suspect]
     Indication: HYPERPHOSPHATAEMIA
     Dosage: 500 mg, 2x/day:bid (500 mg tablet twice a daywith each snack)
     Route: 048

REACTIONS (1)
  - Death [Fatal]
